FAERS Safety Report 5300320-2 (Version None)
Quarter: 2007Q2

REPORT INFORMATION
  Report Type: 
  Country: None (occurrence: None)
  Receive Date: 20070418
  Receipt Date: 20070405
  Transmission Date: 20071010
  Serious: Yes (Other)
  Sender: FDA-Public Use
  Company Number: PHEH2007US04445

PATIENT
  Sex: Female

DRUGS (2)
  1. DIOVAN HCT [Suspect]
     Indication: HYPERTENSION
     Dosage: 160MG VAL/25MG HCT, BID
     Route: 048
     Dates: start: 20050101
  2. TARKA - SLOW RELEASE [Concomitant]
     Indication: HYPERTENSION
     Dates: start: 20070301, end: 20070404

REACTIONS (4)
  - BLOOD PRESSURE INADEQUATELY CONTROLLED [None]
  - COUGH [None]
  - RETINAL VEIN OCCLUSION [None]
  - VISUAL FIELD DEFECT [None]
